FAERS Safety Report 9275641 (Version 1)
Quarter: 2013Q2

REPORT INFORMATION
  Report Type: Spontaneous
  Country: CA (occurrence: None)
  Receive Date: 20130502
  Receipt Date: 20130502
  Transmission Date: 20140414
  Serious: Yes (Other)
  Sender: FDA-Public Use
  Company Number: None

PATIENT
  Age: 71 Year
  Sex: Male
  Weight: 79.38 kg

DRUGS (2)
  1. VOLTAREN [Suspect]
     Indication: PROPHYLAXIS
     Dosage: APPLIED TO SKIN ON SELF
     Dates: start: 20111101, end: 20111130
  2. VOLTAREN [Suspect]
     Indication: SELF-MEDICATION
     Dosage: APPLIED TO SKIN ON SELF
     Dates: start: 20111101, end: 20111130

REACTIONS (3)
  - Application site rash [None]
  - Eczema [None]
  - Drug ineffective [None]
